FAERS Safety Report 24390443 (Version 3)
Quarter: 2024Q4

REPORT INFORMATION
  Report Type: Report from Study
  Country: US (occurrence: US)
  Receive Date: 20241003
  Receipt Date: 20241014
  Transmission Date: 20250115
  Serious: Yes (Death, Other)
  Sender: TAKEDA
  Company Number: US-TAKEDA-2024TUS097003

PATIENT
  Sex: Female
  Weight: 125.5 kg

DRUGS (3)
  1. MARIBAVIR [Suspect]
     Active Substance: MARIBAVIR
     Indication: Cytomegalovirus infection
     Dosage: UNK
     Route: 065
  2. MARIBAVIR [Suspect]
     Active Substance: MARIBAVIR
     Dosage: 400 MILLIGRAM, BID
     Route: 048
  3. MARIBAVIR [Suspect]
     Active Substance: MARIBAVIR
     Dosage: 200 MILLIGRAM, BID
     Route: 048

REACTIONS (2)
  - Death [Fatal]
  - Pericardial effusion [Unknown]
